FAERS Safety Report 23977657 (Version 1)
Quarter: 2024Q2

REPORT INFORMATION
  Report Type: Spontaneous
  Country: AR (occurrence: AR)
  Receive Date: 20240614
  Receipt Date: 20240614
  Transmission Date: 20240716
  Serious: Yes (Other)
  Sender: FDA-Public Use
  Company Number: AR-SANDOZ-SDZ2024AR057740

PATIENT
  Sex: Male
  Weight: 17.6 kg

DRUGS (1)
  1. OMNITROPE [Suspect]
     Active Substance: SOMATROPIN
     Indication: Foetal growth restriction
     Dosage: 0.8  (7 TIMES A WEEK)
     Route: 058
     Dates: start: 20230915

REACTIONS (1)
  - Tibia fracture [Unknown]
